FAERS Safety Report 6934958-3 (Version None)
Quarter: 2010Q3

REPORT INFORMATION
  Report Type: 
  Country: None (occurrence: None)
  Receive Date: 20100821
  Receipt Date: 20100813
  Transmission Date: 20110219
  Serious: Yes (Life-Threatening, Hospitalization)
  Sender: FDA-Public Use
  Company Number: PHHY2010FR53835

PATIENT
  Sex: Female

DRUGS (7)
  1. TRILEPTAL [Suspect]
     Dosage: 50 MG, QID
     Route: 048
  2. LIORESAL [Concomitant]
     Dosage: 4 DF, TID
     Route: 048
  3. RIVOTRIL [Concomitant]
     Dosage: 16 G, QD
     Route: 048
  4. TOPALGIC [Concomitant]
     Dosage: UNK
     Route: 048
  5. DOLIPRANE [Concomitant]
     Dosage: 500 MG, QID
     Route: 048
  6. OMEPRAZOLE [Concomitant]
     Dosage: 20 MG, QD
     Route: 048
  7. TRANSIPEG [Concomitant]
     Dosage: UNK
     Route: 048

REACTIONS (3)
  - CONFUSIONAL STATE [None]
  - HYPONATRAEMIA [None]
  - INAPPROPRIATE ANTIDIURETIC HORMONE SECRETION [None]
